FAERS Safety Report 7345650-8 (Version None)
Quarter: 2011Q1

REPORT INFORMATION
  Report Type: 
  Country: None (occurrence: None)
  Receive Date: 20110310
  Receipt Date: 20100913
  Transmission Date: 20110831
  Serious: Yes (Hospitalization)
  Sender: FDA-Public Use
  Company Number: B0675044A

PATIENT
  Sex: Male
  Weight: 52 kg

DRUGS (16)
  1. GRAN [Concomitant]
     Dates: start: 20080908, end: 20080924
  2. TACROLIMUS HYDRATE [Concomitant]
     Indication: IMMUNOSUPPRESSION
     Dosage: .5MG PER DAY
     Route: 065
     Dates: start: 20080902, end: 20081205
  3. HEPARIN SODIUM [Concomitant]
     Dosage: 4800IU PER DAY
     Dates: start: 20080826, end: 20080903
  4. OMEGACIN [Concomitant]
     Dosage: .9G PER DAY
     Route: 042
     Dates: start: 20080909, end: 20080929
  5. ALKERAN [Suspect]
     Indication: ALLOGENIC BONE MARROW TRANSPLANTATION THERAPY
     Dosage: 70MGM2 PER DAY
     Route: 042
     Dates: start: 20080830, end: 20080901
  6. AMBISOME [Concomitant]
     Dosage: 125MG PER DAY
     Route: 042
     Dates: start: 20080915, end: 20080925
  7. KYTRIL [Concomitant]
     Dosage: 6MG PER DAY
     Route: 042
     Dates: start: 20080826, end: 20080903
  8. SOL-MELCORT [Concomitant]
     Dosage: 80MG PER DAY
     Route: 042
     Dates: start: 20080830, end: 20080902
  9. PRIMPERAN TAB [Concomitant]
     Dosage: 2IUAX PER DAY
     Dates: start: 20080826, end: 20080907
  10. FUROSEMIDE [Concomitant]
     Dosage: 1IUAX PER DAY
     Dates: start: 20080826, end: 20080903
  11. METHOTREXATE [Concomitant]
     Dosage: 23MG PER DAY
     Route: 042
     Dates: start: 20080904
  12. HAPTOGLOBIN [Concomitant]
     Dosage: 4000IU PER DAY
     Route: 042
     Dates: start: 20080903
  13. MAGNESOL [Concomitant]
     Dosage: 20MG PER DAY
     Route: 042
     Dates: start: 20080908, end: 20081005
  14. HABEKACIN [Concomitant]
     Dosage: 200MG PER DAY
     Dates: start: 20080915, end: 20080922
  15. LYMPHOGLOBIN [Suspect]
     Indication: ALLOGENIC BONE MARROW TRANSPLANTATION THERAPY
     Dosage: 2.5MGK PER DAY
     Route: 042
     Dates: start: 20080830, end: 20080902
  16. VENOGLOBULIN [Concomitant]
     Dosage: 5G PER DAY
     Route: 042
     Dates: start: 20080904

REACTIONS (1)
  - FEBRILE NEUTROPENIA [None]
